FAERS Safety Report 6196853-X (Version None)
Quarter: 2009Q2

REPORT INFORMATION
  Report Type: 
  Country: None (occurrence: None)
  Receive Date: 20090520
  Receipt Date: 20090512
  Transmission Date: 20091009
  Serious: Yes (Death)
  Sender: FDA-Public Use
  Company Number: US-GILEAD-2009-0021704

PATIENT
  Sex: Female

DRUGS (13)
  1. LETAIRIS [Suspect]
     Indication: PULMONARY ARTERIAL HYPERTENSION
     Route: 048
  2. LETAIRIS [Suspect]
     Route: 048
     Dates: start: 20080620
  3. LETAIRIS [Suspect]
     Route: 048
     Dates: start: 20080423, end: 20080620
  4. VENTAVIS [Concomitant]
  5. METOCLOPRAMIDE HCL [Concomitant]
  6. COUMADIN [Concomitant]
  7. VERAPAMIL HCL [Concomitant]
  8. SPIRONOLACTONE [Concomitant]
  9. FUROSEMIDE [Concomitant]
  10. EFFEXOR [Concomitant]
  11. ZANTAC [Concomitant]
  12. NEXIUM [Concomitant]
  13. PREDNISONE [Concomitant]

REACTIONS (2)
  - HAEMANGIOMA [None]
  - PULMONARY ARTERIAL HYPERTENSION [None]
